FAERS Safety Report 9061727 (Version 1)
Quarter: 2013Q1

REPORT INFORMATION
  Report Type: Spontaneous
  Country: US (occurrence: None)
  Receive Date: 20130122
  Receipt Date: 20130122
  Transmission Date: 20140127
  Serious: Yes (Other)
  Sender: FDA-Public Use
  Company Number: 001457267A

PATIENT
  Sex: Female

DRUGS (6)
  1. MEANINGFUL BEAUTY ANTIOXIDANT DAY CREME SPF 20 [Concomitant]
     Dosage: TWICE DAILY DERMAL
     Route: 061
     Dates: start: 20121208, end: 20121223
  2. TRIAZOLAM [Concomitant]
  3. LYRICA [Concomitant]
  4. AMOXICILLIN [Concomitant]
  5. CIPROFLOXACIN [Concomitant]
  6. UNDISCLOSED PAIN MEDICATIONS [Concomitant]

REACTIONS (3)
  - Burning sensation [None]
  - Swelling face [None]
  - Throat tightness [None]
